FAERS Safety Report 20216561 (Version 1)
Quarter: 2021Q4

REPORT INFORMATION
  Report Type: Spontaneous
  Country: JP (occurrence: JP)
  Receive Date: 20211222
  Receipt Date: 20211222
  Transmission Date: 20220303
  Serious: Yes (Other)
  Sender: FDA-Public Use
  Company Number: JP-shionogi-202115001_SYP_P_1

PATIENT
  Age: 64 Year
  Sex: Male

DRUGS (14)
  1. NALDEMEDINE [Suspect]
     Active Substance: NALDEMEDINE
     Indication: Constipation
     Dosage: 0.2 MG, QD
     Route: 065
     Dates: start: 20211112
  2. METHADONE HYDROCHLORIDE [Suspect]
     Active Substance: METHADONE HYDROCHLORIDE
     Indication: Cancer pain
     Dosage: 10 MG, QD
     Route: 048
     Dates: start: 20211112, end: 20211207
  3. METHADONE HYDROCHLORIDE [Suspect]
     Active Substance: METHADONE HYDROCHLORIDE
     Dosage: 15 MG, QD
     Route: 048
     Dates: start: 20211207
  4. DIPHENHYDRAMINE HYDROCHLORIDE [Suspect]
     Active Substance: DIPHENHYDRAMINE HYDROCHLORIDE
     Indication: Product used for unknown indication
     Dosage: 50 MG, QD
     Route: 048
     Dates: start: 20211208
  5. PACLITAXEL [Suspect]
     Active Substance: PACLITAXEL
     Indication: Product used for unknown indication
     Dosage: UNKNOWN, UNKNOWN
     Route: 041
  6. MORPHINE HYDROCHLORIDE [Concomitant]
     Active Substance: MORPHINE HYDROCHLORIDE
     Indication: Cancer pain
     Dosage: 15 MG
     Route: 048
     Dates: start: 20211122, end: 20211208
  7. MIROGABALIN BESILATE [Concomitant]
     Indication: Product used for unknown indication
     Dosage: 10 MG, QD
     Route: 065
  8. CAFFEINE/PARACETAMOL/APRONAL/IBUPROFEN/ALUMINIUM HYDROXIDE [Concomitant]
     Indication: Product used for unknown indication
     Dosage: UNKNOWN, UNKNOWN
     Route: 065
     Dates: end: 20211207
  9. LOXOPROFEN [Concomitant]
     Active Substance: LOXOPROFEN
     Indication: Product used for unknown indication
     Dosage: 60 MG, QD
     Route: 065
     Dates: end: 20211207
  10. IBUPROFEN [Concomitant]
     Active Substance: IBUPROFEN
     Indication: Product used for unknown indication
     Dosage: 100 MG, QD
     Route: 065
     Dates: start: 20211207
  11. ACETAMINOPHEN [Concomitant]
     Active Substance: ACETAMINOPHEN
     Indication: Product used for unknown indication
     Dosage: 300 MG, QD
     Route: 065
     Dates: start: 20211207
  12. PALONOSETRON HYDROCHLORIDE [Concomitant]
     Active Substance: PALONOSETRON HYDROCHLORIDE
     Indication: Product used for unknown indication
     Dosage: 0.75 MG, QD
     Route: 041
     Dates: start: 20211208
  13. DEXAMETHASONE SODIUM PHOSPHATE [Concomitant]
     Active Substance: DEXAMETHASONE SODIUM PHOSPHATE
     Indication: Product used for unknown indication
     Dosage: 16.5 MG, QD
     Route: 041
  14. FAMOTIDINE [Concomitant]
     Active Substance: FAMOTIDINE
     Indication: Product used for unknown indication
     Dosage: 10 MG, QD
     Route: 041

REACTIONS (1)
  - Coma [Recovered/Resolved]

NARRATIVE: CASE EVENT DATE: 20211208
